FAERS Safety Report 8579953-6 (Version None)
Quarter: 2012Q3

REPORT INFORMATION
  Report Type: 
  Country: None (occurrence: None)
  Receive Date: 20120808
  Receipt Date: 20120725
  Transmission Date: 20120928
  Serious: Yes (Other)
  Sender: FDA-Public Use
  Company Number: LB-MYLANLABS-2012S1015127

PATIENT
  Age: 16 Year
  Sex: Female
  Weight: 58 kg

DRUGS (2)
  1. ISOTRETINOIN [Suspect]
     Indication: NETHERTON'S SYNDROME
     Dosage: 0.2 MG/KG/DAY
     Route: 048
  2. CLOBETASOL PROPIONATE [Concomitant]
     Indication: NETHERTON'S SYNDROME
     Route: 061

REACTIONS (3)
  - OFF LABEL USE [None]
  - NETHERTON'S SYNDROME [None]
  - CONDITION AGGRAVATED [None]
